FAERS Safety Report 7042159-6 (Version None)
Quarter: 2010Q4

REPORT INFORMATION
  Report Type: 
  Country: None (occurrence: None)
  Receive Date: 20101013
  Receipt Date: 20100615
  Transmission Date: 20110411
  Serious: No
  Sender: FDA-Public Use
  Company Number: US-ASTRAZENECA-2010SE27885

PATIENT
  Age: 57 Year
  Sex: Female

DRUGS (4)
  1. SYMBICORT [Suspect]
     Indication: ASTHMA
     Dosage: 320MCG BID
     Route: 055
     Dates: start: 20070101, end: 20100101
  2. ALBUTEROL [Concomitant]
  3. VICODIN [Concomitant]
  4. OXYCODONE HCL [Concomitant]

REACTIONS (2)
  - ASTHMA [None]
  - DRUG DOSE OMISSION [None]
